FAERS Safety Report 8579993-7 (Version None)
Quarter: 2012Q3

REPORT INFORMATION
  Report Type: 
  Country: None (occurrence: None)
  Receive Date: 20120808
  Receipt Date: 20120801
  Transmission Date: 20120928
  Serious: Yes (Hospitalization, Other)
  Sender: FDA-Public Use
  Company Number: US-ABBOTT-12P-163-0916375-00

PATIENT
  Sex: Female

DRUGS (7)
  1. TYLENOL [Suspect]
     Indication: POST LUMBAR PUNCTURE SYNDROME
  2. MULTI-VITAMINS [Concomitant]
     Indication: PRODUCT USED FOR UNKNOWN INDICATION
  3. DEMEROL [Concomitant]
     Route: 008
  4. HUMIRA [Suspect]
     Indication: PSORIASIS
     Dates: start: 20120301
  5. UNKNOWN MEDICATION [Concomitant]
     Indication: URINARY TRACT INFECTION
  6. HUMIRA [Suspect]
     Dates: end: 20120301
  7. DEMEROL [Suspect]
     Indication: PRODUCT USED FOR UNKNOWN INDICATION

REACTIONS (8)
  - BED REST [None]
  - DRUG HYPERSENSITIVITY [None]
  - PSORIASIS [None]
  - WEIGHT DECREASED [None]
  - POST LUMBAR PUNCTURE SYNDROME [None]
  - ADVERSE DRUG REACTION [None]
  - STAPHYLOCOCCAL INFECTION [None]
  - ERYTHEMA [None]
